FAERS Safety Report 18113607 (Version 1)
Quarter: 2020Q3

REPORT INFORMATION
  Report Type: Spontaneous
  Country: US (occurrence: US)
  Receive Date: 20200805
  Receipt Date: 20200805
  Transmission Date: 20201103
  Serious: Yes (Death)
  Sender: FDA-Public Use
  Company Number: None

PATIENT
  Age: 72 Year
  Sex: Male
  Weight: 74 kg

DRUGS (3)
  1. IRON DEXTRAN (IRON DEXTRAN (EQV?INFED) 50MG/ML INJ) [Suspect]
     Active Substance: IRON DEXTRAN
     Indication: CARDIAC OPERATION
     Route: 042
     Dates: start: 20200803, end: 20200803
  2. IRON DEXTRAN (IRON DEXTRAN (EQV?INFED) 50MG/ML INJ) [Suspect]
     Active Substance: IRON DEXTRAN
     Indication: VASCULAR OPERATION
     Route: 042
     Dates: start: 20200803, end: 20200803
  3. IRON DEXTRAN (IRON DEXTRAN (EQV?INFED) 50MG/ML INJ) [Suspect]
     Active Substance: IRON DEXTRAN
     Indication: CARDIAC FAILURE CONGESTIVE
     Route: 042
     Dates: start: 20200803, end: 20200803

REACTIONS (8)
  - Cardiac failure congestive [None]
  - Cardiac arrest [None]
  - Pulseless electrical activity [None]
  - Microcytic anaemia [None]
  - Nausea [None]
  - Condition aggravated [None]
  - Anaphylactic reaction [None]
  - Vomiting [None]

NARRATIVE: CASE EVENT DATE: 20200803
